FAERS Safety Report 9096054 (Version 1)
Quarter: 2013Q1

REPORT INFORMATION
  Report Type: Spontaneous
  Country: AU (occurrence: AU)
  Receive Date: 20130207
  Receipt Date: 20130207
  Transmission Date: 20140127
  Serious: Yes (Death, Other)
  Sender: FDA-Public Use
  Company Number: AU-CELGENEUS-008-20785-13020225

PATIENT
  Age: 46 Year
  Sex: 0

DRUGS (9)
  1. THALIDOMIDE [Suspect]
     Indication: PLASMA CELL MYELOMA
     Route: 048
     Dates: start: 201001
  2. REVLIMID [Suspect]
     Indication: PLASMA CELL MYELOMA
     Route: 048
  3. ROMIDEPSIN [Suspect]
     Indication: PLASMA CELL MYELOMA
     Route: 065
  4. CYCLOPHOSPHAMIDE [Concomitant]
     Indication: PLASMA CELL MYELOMA
     Route: 065
     Dates: start: 201001
  5. DEXAMETHASONE [Concomitant]
     Indication: PLASMA CELL MYELOMA
     Route: 065
     Dates: start: 201001
  6. BORTEZOMIB [Concomitant]
     Indication: PLASMA CELL MYELOMA
     Route: 065
  7. CISPLATIN [Concomitant]
     Indication: PLASMA CELL MYELOMA
     Route: 065
  8. DOXORUBICIN [Concomitant]
     Indication: PLASMA CELL MYELOMA
     Route: 065
  9. ETOPOSIDE [Concomitant]
     Indication: PLASMA CELL MYELOMA
     Route: 065

REACTIONS (2)
  - Death [Fatal]
  - Plasma cell myeloma [Unknown]
